FAERS Safety Report 6463643-X (Version None)
Quarter: 2009Q4

REPORT INFORMATION
  Report Type: 
  Country: None (occurrence: None)
  Receive Date: 20091201
  Receipt Date: 20091120
  Transmission Date: 20100525
  Serious: Yes (Other)
  Sender: FDA-Public Use
  Company Number: PHEH2009US16448

PATIENT
  Sex: Female

DRUGS (2)
  1. EXJADE [Suspect]
     Dosage: 1500 DAILY
     Route: 048
     Dates: start: 20071115, end: 20090904
  2. EXJADE [Suspect]
     Dosage: UNK

REACTIONS (1)
  - CHOLECYSTECTOMY [None]
